FAERS Safety Report 22967405 (Version 5)
Quarter: 2024Q1

REPORT INFORMATION
  Report Type: Spontaneous
  Country: US (occurrence: US)
  Receive Date: 20230921
  Receipt Date: 20240119
  Transmission Date: 20240410
  Serious: No
  Sender: FDA-Public Use
  Company Number: US-PFIZER INC-PV202200132459

PATIENT
  Age: 86 Year
  Sex: Female

DRUGS (2)
  1. IBRANCE [Suspect]
     Active Substance: PALBOCICLIB
     Dosage: DAILY DAYS 1-21
     Route: 048
     Dates: start: 20200706
  2. IBRANCE [Suspect]
     Active Substance: PALBOCICLIB
     Dosage: DAILY DAYS 1-21, BREAK IN THERAPY DAYS 21-28
     Route: 048
     Dates: start: 20210121

REACTIONS (1)
  - Hypoacusis [Unknown]
